FAERS Safety Report 6416535-6 (Version None)
Quarter: 2009Q4

REPORT INFORMATION
  Report Type: 
  Country: None (occurrence: None)
  Receive Date: 20091027
  Receipt Date: 20091015
  Transmission Date: 20100525
  Serious: Yes (Other)
  Sender: FDA-Public Use
  Company Number: PHHY2008JP31224

PATIENT
  Sex: Male

DRUGS (10)
  1. DIOVAN T30230+TAB+HY [Suspect]
     Indication: HYPERTENSION
     Dosage: 80 MG, QD
     Route: 048
     Dates: start: 20081002, end: 20081023
  2. DIOVAN T30230+TAB+HY [Suspect]
     Dosage: 80 MG, BID
     Route: 048
     Dates: start: 20081023, end: 20081106
  3. ADALAT CC [Concomitant]
     Indication: HYPERTENSION
     Dosage: 20 MG, UNK
     Route: 048
     Dates: start: 20081002
  4. ADALAT CC [Concomitant]
     Dosage: 40 MG, UNK
     Dates: end: 20081023
  5. ARTIST [Concomitant]
     Indication: HYPERTENSION
     Dosage: 2.5 MG, UNK
     Dates: start: 20081009
  6. ARTIST [Concomitant]
     Dosage: 5 MG, UNK
     Route: 048
  7. NORVASC [Concomitant]
     Indication: HYPERTENSION
     Dosage: 5 MG, UNK
     Route: 048
     Dates: start: 20081023
  8. OLMETEC [Concomitant]
     Indication: HYPERTENSION
     Dosage: 20 MG, UNK
     Route: 048
     Dates: start: 20081106
  9. LIVALO [Concomitant]
     Dosage: 2 MG, UNK
     Route: 048
     Dates: start: 20081002
  10. ZYLORIC [Concomitant]
     Dosage: 100 MG, UNK
     Route: 048
     Dates: start: 20081028

REACTIONS (1)
  - WHITE BLOOD CELL COUNT DECREASED [None]
